FAERS Safety Report 10335152 (Version 1)
Quarter: 2014Q3

REPORT INFORMATION
  Report Type: Spontaneous
  Country: US (occurrence: US)
  Receive Date: 20140723
  Receipt Date: 20140723
  Transmission Date: 20150326
  Serious: No
  Sender: FDA-Public Use
  Company Number: US-ASTRAZENECA-2014SE51157

PATIENT
  Age: 61 Year
  Sex: Male
  Weight: 122.5 kg

DRUGS (2)
  1. QUETIAPINE FUMARATE. [Suspect]
     Active Substance: QUETIAPINE FUMARATE
     Indication: ANXIETY
     Route: 048
     Dates: start: 201405
  2. CRESTOR [Suspect]
     Active Substance: ROSUVASTATIN CALCIUM
     Indication: BLOOD CHOLESTEROL ABNORMAL
     Dosage: UNKNOWN DAILY
     Route: 048
     Dates: start: 2008

REACTIONS (3)
  - Weight increased [Unknown]
  - Intentional product misuse [Unknown]
  - Eating disorder [Unknown]

NARRATIVE: CASE EVENT DATE: 201405
